FAERS Safety Report 15017856 (Version 1)
Quarter: 2018Q2

REPORT INFORMATION
  Report Type: Spontaneous
  Country: US (occurrence: US)
  Receive Date: 20180615
  Receipt Date: 20180615
  Transmission Date: 20180711
  Serious: Yes (Other)
  Sender: FDA-Public Use
  Company Number: US-PFIZER INC-2018239601

PATIENT
  Age: 11 Year
  Sex: Male
  Weight: 32.66 kg

DRUGS (2)
  1. DEPAKOTE [Concomitant]
     Active Substance: DIVALPROEX SODIUM
     Indication: SEIZURE
     Dosage: ONE PILL IN THE MORNING AND ONE AT NIGHT
  2. GENOTROPIN [Suspect]
     Active Substance: SOMATROPIN
     Indication: BLOOD GROWTH HORMONE ABNORMAL
     Dosage: 1.6MG INJECTED AT THE TOP OF HIS LEGS OR ARMS ONE SHOT A DAY

REACTIONS (2)
  - Incorrect dose administered [Unknown]
  - Gray matter heterotopia [Unknown]

NARRATIVE: CASE EVENT DATE: 2014
